FAERS Safety Report 6393418-1 (Version None)
Quarter: 2009Q4

REPORT INFORMATION
  Report Type: 
  Country: None (occurrence: None)
  Receive Date: 20091008
  Receipt Date: 20090930
  Transmission Date: 20100525
  Serious: Yes (Death, Hospitalization, Other)
  Sender: FDA-Public Use
  Company Number: JP-ABBOTT-09P-087-0573858-00

PATIENT
  Sex: Female
  Weight: 50 kg

DRUGS (12)
  1. HUMIRA [Suspect]
     Indication: RHEUMATOID ARTHRITIS
     Route: 058
     Dates: start: 20081029, end: 20090117
  2. HUMIRA [Suspect]
     Route: 058
     Dates: start: 20090312, end: 20090325
  3. PREDNISOLONE [Suspect]
     Indication: RHEUMATOID ARTHRITIS
     Route: 048
     Dates: start: 20080903, end: 20090413
  4. LOXOPROFEN SODIUM HYDRATE [Concomitant]
     Indication: RHEUMATOID ARTHRITIS
     Route: 048
     Dates: start: 20081210, end: 20090105
  5. LOXOPROFEN SODIUM HYDRATE [Concomitant]
  6. GLIMEPIRIDE [Concomitant]
     Indication: DIABETES MELLITUS
     Dosage: 6 MG DAILY
     Route: 048
     Dates: start: 20030624, end: 20090413
  7. FUROSEMIDE [Concomitant]
     Indication: CARDIAC FAILURE
     Route: 048
     Dates: start: 20080201, end: 20090413
  8. ALFACALCIDOL [Concomitant]
     Indication: OSTEOPOROSIS
     Route: 048
     Dates: start: 20081023, end: 20090413
  9. CILNIDIPINE [Concomitant]
     Indication: HYPERTENSION
     Route: 048
     Dates: start: 20080812, end: 20090413
  10. ALENDRONATE SODIUM [Concomitant]
     Indication: OSTEOPOROSIS
     Route: 048
     Dates: start: 20070306, end: 20090413
  11. METHOTREXATE [Concomitant]
     Indication: RHEUMATOID ARTHRITIS
     Dates: start: 20090110, end: 20090312
  12. PENICILLAMINE [Concomitant]
     Indication: RHEUMATOID ARTHRITIS
     Dates: end: 20090110

REACTIONS (11)
  - ACUTE RESPIRATORY FAILURE [None]
  - ENDOPHTHALMITIS [None]
  - ENDOTOXIC SHOCK [None]
  - EYE INFECTION [None]
  - GAIT DISTURBANCE [None]
  - LOSS OF CONSCIOUSNESS [None]
  - OSTEOARTHRITIS [None]
  - PNEUMONIA BACTERIAL [None]
  - PYOTHORAX [None]
  - SEPSIS [None]
  - URINARY TRACT INFECTION [None]
